FAERS Safety Report 13440031 (Version 1)
Quarter: 2017Q2

REPORT INFORMATION
  Report Type: Spontaneous
  Country: IT (occurrence: IT)
  Receive Date: 20170413
  Receipt Date: 20170413
  Transmission Date: 20170830
  Serious: No
  Sender: FDA-Public Use
  Company Number: IT-LUPIN PHARMACEUTICALS INC.-2017-00902

PATIENT
  Age: 59 Year
  Sex: Female

DRUGS (1)
  1. MORPHINE [Suspect]
     Active Substance: MORPHINE
     Indication: CANCER PAIN
     Dosage: UNK UNK,BID,
     Route: 048

REACTIONS (2)
  - Vomiting [Unknown]
  - Nausea [Unknown]
